FAERS Safety Report 18252381 (Version 1)
Quarter: 2020Q3

REPORT INFORMATION
  Report Type: Spontaneous
  Country: US (occurrence: US)
  Receive Date: 20200910
  Receipt Date: 20200910
  Transmission Date: 20201103
  Serious: No
  Sender: FDA-Public Use
  Company Number: US-FARMAPROD-202006-0900

PATIENT
  Sex: Female

DRUGS (11)
  1. LEVOTHYROXINE SODIUM. [Concomitant]
     Active Substance: LEVOTHYROXINE SODIUM
  2. VITAMINE D3/ALOE [Concomitant]
     Dosage: 120MG?1000
  3. FISH OIL/VITAMINE D [Concomitant]
     Dosage: 120MG?1000
  4. SIMVASTATIN. [Concomitant]
     Active Substance: SIMVASTATIN
  5. TOBRAMYCIN AND DEXAMETHASONE [Concomitant]
     Active Substance: DEXAMETHASONE\TOBRAMYCIN
  6. ACICLOVIR [Concomitant]
     Active Substance: ACYCLOVIR
  7. IRON [Concomitant]
     Active Substance: IRON
     Dosage: 325(65) MG
  8. VITAMINE C [Concomitant]
     Active Substance: ASCORBIC ACID
  9. CALCIUM/ VITAMINE D3 [Concomitant]
     Dosage: 600 MG?500 TABLET ER
  10. OXERVATE [Suspect]
     Active Substance: CENEGERMIN-BKBJ
     Indication: NEUROTROPHIC KERATOPATHY
     Route: 047
     Dates: start: 20200619
  11. BIOTIN [Concomitant]
     Active Substance: BIOTIN

REACTIONS (3)
  - Ocular hyperaemia [Unknown]
  - Eye pain [Unknown]
  - Eye swelling [Unknown]
